FAERS Safety Report 15532879 (Version 1)
Quarter: 2018Q4

REPORT INFORMATION
  Report Type: Spontaneous
  Country: SI (occurrence: SI)
  Receive Date: 20181019
  Receipt Date: 20181019
  Transmission Date: 20190205
  Serious: Yes (Other)
  Sender: FDA-Public Use
  Company Number: SI-BAYER-2018-192903

PATIENT
  Sex: Female
  Weight: 72 kg

DRUGS (1)
  1. YAZ [Suspect]
     Active Substance: DROSPIRENONE\ETHINYL ESTRADIOL
     Indication: CONTRACEPTION
     Dosage: UNK
     Route: 048
     Dates: start: 2016

REACTIONS (4)
  - Cardiac arrest [Recovered/Resolved]
  - Weight increased [None]
  - Pulmonary embolism [Recovered/Resolved]
  - Circulatory collapse [None]

NARRATIVE: CASE EVENT DATE: 2016
